FAERS Safety Report 5934975-6 (Version None)
Quarter: 2008Q4

REPORT INFORMATION
  Report Type: 
  Country: None (occurrence: None)
  Receive Date: 20081028
  Receipt Date: 20081014
  Transmission Date: 20090506
  Serious: Yes (Life-Threatening, Hospitalization)
  Sender: FDA-Public Use
  Company Number: 062750-2008-00001

PATIENT
  Age: 38 Year
  Sex: Male
  Weight: 81.6475 kg

DRUGS (2)
  1. ZICAM MULTI-SYMPTOM COLD + FLU TO GO NIGHTTIME [Suspect]
     Indication: OROPHARYNGEAL PAIN
     Dosage: 1 SINGLE DOSE SPOON ORA
     Route: 048
     Dates: start: 20081012, end: 20081012
  2. CENTRUM MULTIVITAMIN [Concomitant]

REACTIONS (2)
  - CONVULSION [None]
  - HEART RATE IRREGULAR [None]
